FAERS Safety Report 23347307 (Version 1)
Quarter: 2023Q4

REPORT INFORMATION
  Report Type: Spontaneous
  Country: FR (occurrence: FR)
  Receive Date: 20231228
  Receipt Date: 20231228
  Transmission Date: 20240110
  Serious: Yes (Hospitalization)
  Sender: FDA-Public Use
  Company Number: None

PATIENT
  Age: 69 Year
  Sex: Male
  Weight: 81 kg

DRUGS (3)
  1. CISPLATIN [Suspect]
     Active Substance: CISPLATIN
     Indication: Bronchial carcinoma
     Dosage: 100 MILLIGRAM/KILOGRAM
     Route: 042
     Dates: start: 20230810, end: 20230810
  2. ATEZOLIZUMAB [Suspect]
     Active Substance: ATEZOLIZUMAB
     Indication: Bronchial carcinoma
     Dosage: 1200 MILLIGRAM
     Route: 042
     Dates: start: 20230810, end: 20230810
  3. NAVELBINE [Suspect]
     Active Substance: VINORELBINE TARTRATE
     Indication: Bronchial carcinoma
     Dosage: 25 MILLIGRAM/KILOGRAM,(25MG/KG ON D2+D9)
     Route: 042
     Dates: start: 20230811, end: 20230818

REACTIONS (1)
  - Myocarditis [Recovering/Resolving]

NARRATIVE: CASE EVENT DATE: 20230823
